FAERS Safety Report 19939444 (Version 1)
Quarter: 2021Q4

REPORT INFORMATION
  Report Type: Spontaneous
  Country: US (occurrence: US)
  Receive Date: 20211011
  Receipt Date: 20211011
  Transmission Date: 20220303
  Serious: Yes (Other)
  Sender: FDA-Public Use
  Company Number: US-BAYER-2021A221670

PATIENT
  Age: 58 Year
  Sex: Female
  Weight: 77.11 kg

DRUGS (2)
  1. AVELOX [Suspect]
     Active Substance: MOXIFLOXACIN HYDROCHLORIDE
  2. COVID-19 VACCINE [Concomitant]

REACTIONS (8)
  - Anaphylactic reaction [None]
  - Ear pruritus [None]
  - Tinnitus [None]
  - Ear discomfort [None]
  - Throat irritation [None]
  - Oropharyngeal pain [None]
  - Hypersensitivity [None]
  - Urticaria [None]
